FAERS Safety Report 6307616-6 (Version None)
Quarter: 2009Q3

REPORT INFORMATION
  Report Type: 
  Country: None (occurrence: None)
  Receive Date: 20090813
  Receipt Date: 20090810
  Transmission Date: 20100115
  Serious: Yes (Hospitalization)
  Sender: FDA-Public Use
  Company Number: US-ASTRAZENECA-2009UW21896

PATIENT
  Age: 45 Year
  Sex: Female

DRUGS (9)
  1. SEROQUEL XR [Suspect]
     Indication: BIPOLAR DISORDER
     Dosage: ONCE A DAY IN THE EVENING
     Route: 048
     Dates: start: 20090101, end: 20090803
  2. SEROQUEL XR [Suspect]
     Route: 048
     Dates: end: 20090101
  3. LOPRESSOR [Concomitant]
     Indication: VENTRICULAR EXTRASYSTOLES
  4. NAPROSYN [Concomitant]
     Indication: PERICARDITIS
  5. ZOLOFT [Concomitant]
  6. TOPAMAX [Concomitant]
  7. PREVACID [Concomitant]
  8. ZOCOR [Concomitant]
  9. LORAZEPAM [Concomitant]

REACTIONS (5)
  - ELECTROCARDIOGRAM QT PROLONGED [None]
  - EXTRASYSTOLES [None]
  - FEELING ABNORMAL [None]
  - INSOMNIA [None]
  - PERICARDITIS [None]
